FAERS Safety Report 4469275-7 (Version None)
Quarter: 2004Q4

REPORT INFORMATION
  Report Type: 
  Country: None (occurrence: None)
  Receive Date: 20041008
  Receipt Date: 20030825
  Transmission Date: 20050328
  Serious: No
  Sender: FDA-Public Use
  Company Number: US-BRISTOL-MYERS SQUIBB COMPANY-12365813

PATIENT
  Age: 55 Year
  Sex: Female
  Weight: 61 kg

DRUGS (2)
  1. AVAPRO [Suspect]
     Indication: HYPERTENSION
     Route: 048
     Dates: start: 20030717, end: 20030823
  2. CELEBREX [Suspect]

REACTIONS (1)
  - ARRHYTHMIA [None]
